FAERS Safety Report 16206087 (Version 1)
Quarter: 2019Q2

REPORT INFORMATION
  Report Type: Spontaneous
  Country: US (occurrence: US)
  Receive Date: 20190416
  Receipt Date: 20190416
  Transmission Date: 20190711
  Serious: No
  Sender: FDA-Public Use
  Company Number: None

PATIENT
  Sex: Female
  Weight: 78.56 kg

DRUGS (22)
  1. MAGNESIUM OXIDE. [Concomitant]
     Active Substance: MAGNESIUM OXIDE
  2. ASPIRIN. [Concomitant]
     Active Substance: ASPIRIN
  3. ALPRAZOLAM. [Concomitant]
     Active Substance: ALPRAZOLAM
  4. LETROZOLE. [Concomitant]
     Active Substance: LETROZOLE
  5. IBUPROFEN. [Concomitant]
     Active Substance: IBUPROFEN
  6. PROVENTIL [Concomitant]
     Active Substance: ALBUTEROL
  7. GABAPENTIN. [Concomitant]
     Active Substance: GABAPENTIN
  8. CALCIUM + VITAMIN D [Concomitant]
     Active Substance: CALCIUM\VITAMIN D
  9. LORATADINE. [Concomitant]
     Active Substance: LORATADINE
  10. MELATONIN [Concomitant]
     Active Substance: MELATONIN
  11. AMLODIPINE [Concomitant]
     Active Substance: AMLODIPINE BESYLATE
  12. NAPROXEN. [Concomitant]
     Active Substance: NAPROXEN
  13. RANITIDINE. [Concomitant]
     Active Substance: RANITIDINE
  14. SENNA-DOCUSATE [Concomitant]
     Active Substance: DOCUSATE SODIUM\SENNOSIDES
  15. OMEPRAZOLE. [Concomitant]
     Active Substance: OMEPRAZOLE
  16. DIPHENHYDRAMINE. [Concomitant]
     Active Substance: DIPHENHYDRAMINE
  17. LEVAQUIN [Concomitant]
     Active Substance: LEVOFLOXACIN
  18. IBRANCE [Suspect]
     Active Substance: PALBOCICLIB
     Indication: BREAST CANCER
     Dosage: ?          OTHER FREQUENCY:QD 3 WK ON 1WK OFF;?
     Route: 048
     Dates: start: 20181102, end: 20190416
  19. XGEVA [Concomitant]
     Active Substance: DENOSUMAB
  20. VITAMIN B12 [Concomitant]
     Active Substance: CYANOCOBALAMIN
  21. MULTIVITAMIN ADULTS [Concomitant]
  22. TUMS [Concomitant]
     Active Substance: CALCIUM CARBONATE

REACTIONS (2)
  - Fatigue [None]
  - Therapy change [None]
